FAERS Safety Report 22028609 (Version 1)
Quarter: 2023Q1

REPORT INFORMATION
  Report Type: Spontaneous
  Country: US (occurrence: US)
  Receive Date: 20230223
  Receipt Date: 20230223
  Transmission Date: 20230417
  Serious: Yes (Other)
  Sender: FDA-Public Use
  Company Number: US-PFIZER INC-PV202300033289

PATIENT
  Age: 43 Year
  Sex: Female

DRUGS (15)
  1. METHOTREXATE SODIUM [Suspect]
     Active Substance: METHOTREXATE SODIUM
     Indication: Choriocarcinoma
     Dosage: UNK UNK, CYCLIC
     Dates: start: 20210219
  2. METHOTREXATE SODIUM [Suspect]
     Active Substance: METHOTREXATE SODIUM
     Dosage: UNK UNK, CYCLIC
     Dates: start: 20210307
  3. METHOTREXATE SODIUM [Suspect]
     Active Substance: METHOTREXATE SODIUM
     Dosage: UNK UNK, CYCLIC
     Dates: start: 20210402
  4. VINCRISTINE SULFATE [Suspect]
     Active Substance: VINCRISTINE SULFATE
     Indication: Choriocarcinoma
     Dosage: UNK, CYCLIC
     Dates: start: 20210219
  5. VINCRISTINE SULFATE [Suspect]
     Active Substance: VINCRISTINE SULFATE
     Dosage: UNK, CYCLIC
     Dates: start: 20210307
  6. VINCRISTINE SULFATE [Suspect]
     Active Substance: VINCRISTINE SULFATE
     Dosage: UNK, CYCLIC
     Dates: start: 20210402
  7. CYCLOPHOSPHAMIDE [Suspect]
     Active Substance: CYCLOPHOSPHAMIDE
     Indication: Choriocarcinoma
     Dosage: UNK, CYCLIC
     Dates: start: 20210219
  8. CYCLOPHOSPHAMIDE [Suspect]
     Active Substance: CYCLOPHOSPHAMIDE
     Dosage: UNK, CYCLIC
     Dates: start: 20210307
  9. CYCLOPHOSPHAMIDE [Suspect]
     Active Substance: CYCLOPHOSPHAMIDE
     Dosage: UNK, CYCLIC
     Dates: start: 20210402
  10. ETOPOSIDE [Suspect]
     Active Substance: ETOPOSIDE
     Indication: Choriocarcinoma
     Dosage: UNK UNK, CYCLIC
     Dates: start: 20210219
  11. ETOPOSIDE [Suspect]
     Active Substance: ETOPOSIDE
     Dosage: UNK UNK, CYCLIC
     Dates: start: 20210307
  12. ETOPOSIDE [Suspect]
     Active Substance: ETOPOSIDE
     Dosage: UNK UNK, CYCLIC
     Dates: start: 20210402
  13. ACTINOMYCIN D [Suspect]
     Active Substance: DACTINOMYCIN
     Indication: Choriocarcinoma
     Dosage: UNK UNK, CYCLIC
     Dates: start: 20210219
  14. ACTINOMYCIN D [Suspect]
     Active Substance: DACTINOMYCIN
     Dosage: UNK UNK, CYCLIC
     Dates: start: 20210307
  15. ACTINOMYCIN D [Suspect]
     Active Substance: DACTINOMYCIN
     Dosage: UNK UNK, CYCLIC
     Dates: start: 20210402

REACTIONS (3)
  - Granulocytopenia [Unknown]
  - Gastrointestinal disorder [Unknown]
  - Drug resistance [Unknown]
